FAERS Safety Report 7861182-2 (Version None)
Quarter: 2011Q4

REPORT INFORMATION
  Report Type: 
  Country: None (occurrence: None)
  Receive Date: 20111027
  Receipt Date: 20111018
  Transmission Date: 20120403
  Serious: Yes (Hospitalization)
  Sender: FDA-Public Use
  Company Number: US-ASTRAZENECA-2011SE46179

PATIENT
  Age: 41 Year
  Sex: Male
  Weight: 127 kg

DRUGS (7)
  1. SEROQUEL [Suspect]
     Indication: INSOMNIA
     Route: 048
     Dates: start: 20020101, end: 20110717
  2. VICODIN [Concomitant]
     Indication: PAIN
     Dates: end: 20101201
  3. SEROQUEL [Suspect]
     Dosage: 100 MGS ONCE OR TWICE A DAY
     Route: 048
     Dates: start: 20110806
  4. KLONOPIN [Concomitant]
     Dosage: BID
  5. SEROQUEL [Suspect]
     Dosage: 100 MGS ONCE OR TWICE A DAY
     Route: 048
     Dates: start: 20110806
  6. SEROQUEL [Suspect]
     Indication: SLEEP DISORDER
     Route: 048
     Dates: start: 20020101, end: 20110717
  7. XANAX [Concomitant]
     Indication: PAIN
     Dates: end: 20101201

REACTIONS (20)
  - PAIN [None]
  - INSOMNIA [None]
  - NAUSEA [None]
  - PSYCHOMOTOR HYPERACTIVITY [None]
  - PANIC DISORDER [None]
  - MIDDLE INSOMNIA [None]
  - ABDOMINAL PAIN UPPER [None]
  - IRRITABILITY [None]
  - VOMITING [None]
  - DRUG DOSE OMISSION [None]
  - ROAD TRAFFIC ACCIDENT [None]
  - OFF LABEL USE [None]
  - BACK INJURY [None]
  - BACK PAIN [None]
  - HEADACHE [None]
  - PARAESTHESIA [None]
  - DRUG WITHDRAWAL SYNDROME [None]
  - RESTLESSNESS [None]
  - FEELING ABNORMAL [None]
  - FEELING JITTERY [None]
